FAERS Safety Report 9309182 (Version 1)
Quarter: 2013Q2

REPORT INFORMATION
  Report Type: Spontaneous
  Country: US (occurrence: US)
  Receive Date: 20130525
  Receipt Date: 20130525
  Transmission Date: 20140414
  Serious: No
  Sender: FDA-Public Use
  Company Number: US-BRISTOL-MYERS SQUIBB COMPANY-18697573

PATIENT
  Age: 45 Year
  Sex: Male

DRUGS (6)
  1. BYDUREON [Suspect]
     Indication: DIABETES MELLITUS
     Route: 058
     Dates: start: 201212
  2. METFORMIN [Concomitant]
  3. EUTHYROX [Concomitant]
  4. RAMIPRIL [Concomitant]
  5. NOVAMINSULFON [Concomitant]
  6. FUROSEMIDE [Concomitant]

REACTIONS (1)
  - Joint swelling [Not Recovered/Not Resolved]
